FAERS Safety Report 8729599 (Version 2)
Quarter: 2012Q4

REPORT INFORMATION
  Report Type: Report from Study
  Country: DE (occurrence: DE)
  Receive Date: 20120817
  Receipt Date: 20120830
  Transmission Date: 20130627
  Serious: Yes (Hospitalization)
  Sender: FDA-Public Use
  Company Number: DE-PFIZER INC-2012195377

PATIENT
  Age: 66 Year
  Sex: Female
  Weight: 71 kg

DRUGS (10)
  1. AXITINIB [Suspect]
     Indication: HEPATIC NEOPLASM MALIGNANT
     Dosage: 5 mg, 2x/day
     Route: 048
     Dates: start: 20120419, end: 20120809
  2. INNOHEP [Concomitant]
     Indication: PROPHYLAXIS
     Dosage: UNK
     Dates: start: 201104
  3. PARACODIN [Concomitant]
     Indication: COUGH
  4. SIMVASTATIN [Concomitant]
     Indication: HYPERCHOLESTEROLAEMIA
     Dosage: UNK
     Dates: start: 200901
  5. METOPROLOL [Concomitant]
     Indication: HYPERTENSION
     Dosage: UNK
  6. DELIX [Concomitant]
     Indication: HYPERTENSION
     Dosage: UNK
  7. VAGANTIN [Concomitant]
     Indication: NIGHT SWEATS
     Dosage: UNK
  8. OMEPRAZOLE [Concomitant]
     Indication: GASTRITIS
     Dosage: UNK
  9. TAVOR [Concomitant]
     Indication: DEPRESSION
     Dosage: UNK
  10. OPIPRAMOL [Concomitant]
     Indication: DEPRESSION
     Dosage: UNK

REACTIONS (1)
  - Inflammation [Recovered/Resolved]
